FAERS Safety Report 22058520 (Version 1)
Quarter: 2023Q1

REPORT INFORMATION
  Report Type: Spontaneous
  Country: CA (occurrence: CA)
  Receive Date: 20230303
  Receipt Date: 20230303
  Transmission Date: 20230417
  Serious: Yes (Hospitalization, Other)
  Sender: FDA-Public Use
  Company Number: CA-SAMSUNG BIOEPIS-SB-2023-05719

PATIENT
  Age: 33 Year
  Sex: Female
  Weight: 52 kg

DRUGS (3)
  1. INFLIXIMAB [Suspect]
     Active Substance: INFLIXIMAB
     Indication: Crohn^s disease
     Route: 042
  2. INFLIXIMAB [Suspect]
     Active Substance: INFLIXIMAB
     Route: 042
  3. INFLIXIMAB [Suspect]
     Active Substance: INFLIXIMAB
     Dosage: UNKNOWN
     Route: 065

REACTIONS (20)
  - Arthralgia [Not Recovered/Not Resolved]
  - Asthenia [Not Recovered/Not Resolved]
  - Blood pressure diastolic increased [Not Recovered/Not Resolved]
  - Blood pressure fluctuation [Not Recovered/Not Resolved]
  - Bronchitis [Not Recovered/Not Resolved]
  - Condition aggravated [Not Recovered/Not Resolved]
  - Headache [Not Recovered/Not Resolved]
  - Heart rate decreased [Recovered/Resolved]
  - Heart rate irregular [Not Recovered/Not Resolved]
  - Leukopenia [Not Recovered/Not Resolved]
  - Malaise [Not Recovered/Not Resolved]
  - Mucous stools [Not Recovered/Not Resolved]
  - Nausea [Not Recovered/Not Resolved]
  - Neutrophil count decreased [Not Recovered/Not Resolved]
  - Pneumonia [Not Recovered/Not Resolved]
  - Pyrexia [Not Recovered/Not Resolved]
  - Viral infection [Not Recovered/Not Resolved]
  - White blood cell count decreased [Not Recovered/Not Resolved]
  - Intentional product use issue [Not Recovered/Not Resolved]
  - Off label use [Not Recovered/Not Resolved]
